FAERS Safety Report 6644818-3 (Version None)
Quarter: 2010Q1

REPORT INFORMATION
  Report Type: 
  Country: None (occurrence: None)
  Receive Date: 20100322
  Receipt Date: 20100312
  Transmission Date: 20100710
  Serious: Yes (Other)
  Sender: FDA-Public Use
  Company Number: GXKR2010GB03034

PATIENT
  Sex: Female

DRUGS (1)
  1. INDOMETHACIN (NGX) [Suspect]
     Indication: BACK PAIN
     Route: 048

REACTIONS (1)
  - SPINAL CORD HAEMORRHAGE [None]
